FAERS Safety Report 5296048-8 (Version None)
Quarter: 2007Q2

REPORT INFORMATION
  Report Type: 
  Country: None (occurrence: None)
  Receive Date: 20070413
  Receipt Date: 20070403
  Transmission Date: 20071010
  Serious: Yes (Other)
  Sender: FDA-Public Use
  Company Number: AUWYE384229JAN07

PATIENT
  Age: 56 Year
  Sex: Male

DRUGS (5)
  1. EFFEXOR XR [Suspect]
     Route: 048
     Dates: end: 20070101
  2. EFFEXOR XR [Suspect]
     Route: 048
     Dates: start: 20070101, end: 20070101
  3. ASPIRIN [Concomitant]
     Dosage: 150 MG DAILY
     Route: 048
  4. VITAMIN D [Concomitant]
  5. VALPROATE SODIUM [Concomitant]
     Indication: AFFECTIVE DISORDER
     Dosage: 1000 MG BD PLUS 200 MG NOCTE
     Route: 048

REACTIONS (8)
  - ASTHENIA [None]
  - ATRIAL FIBRILLATION [None]
  - DIZZINESS [None]
  - DYSPNOEA [None]
  - FEELING ABNORMAL [None]
  - LETHARGY [None]
  - SICK SINUS SYNDROME [None]
  - SUPRAVENTRICULAR EXTRASYSTOLES [None]
